FAERS Safety Report 26153614 (Version 1)
Quarter: 2025Q4

REPORT INFORMATION
  Report Type: Spontaneous
  Country: US (occurrence: US)
  Receive Date: 20251214
  Receipt Date: 20251214
  Transmission Date: 20260117
  Serious: No
  Sender: Atnahs Healthcare
  Company Number: US-ATNAHS-ATNAHS20250100082

PATIENT
  Age: 49 Year
  Sex: Female

DRUGS (3)
  1. VALIUM [Suspect]
     Active Substance: DIAZEPAM
     Indication: Urticaria
     Dosage: UNK
     Route: 065
  2. KLONOPIN [Suspect]
     Active Substance: CLONAZEPAM
     Indication: Urticaria
     Dosage: 0.5 MG, 2 IN 1 DAY
  3. BENADRYL [Concomitant]
     Active Substance: DIPHENHYDRAMINE HYDROCHLORIDE
     Indication: Product used for unknown indication
     Dosage: UNK

REACTIONS (5)
  - Mast cell activation syndrome [Unknown]
  - Urticaria chronic [Unknown]
  - Ehlers-Danlos syndrome [Unknown]
  - Autonomic nervous system imbalance [Unknown]
  - Nasal congestion [Unknown]
